FAERS Safety Report 6958148-3 (Version None)
Quarter: 2010Q3

REPORT INFORMATION
  Report Type: 
  Country: None (occurrence: None)
  Receive Date: 20100831
  Receipt Date: 20100819
  Transmission Date: 20110219
  Serious: Yes (Life-Threatening, Other)
  Sender: FDA-Public Use
  Company Number: JP-PFIZER INC-2010014069

PATIENT
  Age: 62 Year
  Sex: Male
  Weight: 61.2 kg

DRUGS (15)
  1. SUNITINIB MALATE [Suspect]
     Indication: RENAL CELL CARCINOMA
     Dosage: 50 MG, 1X/DAY
     Route: 048
     Dates: start: 20090929, end: 20091218
  2. RIBOFLAVIN TETRABUTYRATE [Concomitant]
     Indication: PROPHYLAXIS
     Route: 048
     Dates: start: 20090929, end: 20091026
  3. RIBOFLAVIN TETRABUTYRATE [Concomitant]
     Dosage: 20 MG, 3X/DAY
     Route: 048
     Dates: start: 20091125, end: 20091222
  4. RIBOFLAVIN TETRABUTYRATE [Concomitant]
     Dosage: 20 MG, 3X/DAY
     Dates: start: 20100108, end: 20100204
  5. RIBOFLAVIN TETRABUTYRATE [Concomitant]
     Dosage: 20 MG, 3X/DAY
     Route: 048
     Dates: start: 20100219, end: 20100318
  6. PYDOXAL [Concomitant]
     Indication: PROPHYLAXIS
     Route: 048
     Dates: start: 20090929, end: 20091026
  7. PYDOXAL [Concomitant]
     Dosage: 10 MG, 3X/DAY
     Route: 048
     Dates: start: 20091125, end: 20091222
  8. PYDOXAL [Concomitant]
     Dosage: 10 MG, 3X/DAY
     Dates: start: 20100108, end: 20100204
  9. PYDOXAL [Concomitant]
     Dosage: 10 MG, 3X/DAY
     Route: 048
     Dates: start: 20100219, end: 20100318
  10. PASTARON [Concomitant]
     Indication: PROPHYLAXIS
     Route: 062
     Dates: start: 20090929, end: 20091026
  11. PASTARON [Concomitant]
     Dosage: 20 G, UNK
     Route: 048
     Dates: start: 20091125, end: 20091222
  12. PASTARON [Concomitant]
     Dosage: 20 G, UNK
     Dates: start: 20100108, end: 20100204
  13. PASTARON [Concomitant]
     Dosage: 20 G, UNK
     Dates: start: 20100219, end: 20100318
  14. OMEPRAL [Concomitant]
     Route: 048
     Dates: start: 20091010, end: 20091026
  15. OMEPRAL [Concomitant]
     Dosage: 20 MG, 1X/DAY
     Route: 048
     Dates: start: 20091127, end: 20091222

REACTIONS (7)
  - ALANINE AMINOTRANSFERASE INCREASED [None]
  - ASPARTATE AMINOTRANSFERASE INCREASED [None]
  - BLOOD ALKALINE PHOSPHATASE INCREASED [None]
  - C-REACTIVE PROTEIN INCREASED [None]
  - HEPATIC FUNCTION ABNORMAL [None]
  - HYPERBILIRUBINAEMIA [None]
  - PLATELET COUNT DECREASED [None]
